FAERS Safety Report 8522092-0 (Version None)
Quarter: 2012Q3

REPORT INFORMATION
  Report Type: 
  Country: None (occurrence: None)
  Receive Date: 20120709
  Receipt Date: 20120531
  Transmission Date: 20120928
  Serious: Yes (Hospitalization)
  Sender: FDA-Public Use
  Company Number: 2012MA008185

PATIENT
  Age: 8 Month
  Sex: Female

DRUGS (1)
  1. FEVERALL [Suspect]
     Indication: PYREXIA
     Dosage: 750 MG;QD;RTL
     Route: 054
     Dates: start: 20120517, end: 20120521

REACTIONS (1)
  - HEPATITIS ACUTE [None]
